FAERS Safety Report 21380905 (Version 1)
Quarter: 2022Q3

REPORT INFORMATION
  Report Type: Spontaneous
  Country: DE (occurrence: DE)
  Receive Date: 20220927
  Receipt Date: 20220927
  Transmission Date: 20221027
  Serious: Yes (Life-Threatening, Hospitalization)
  Sender: FDA-Public Use
  Company Number: DE-NOVARTISPH-NVSC2022DE217384

PATIENT
  Age: 51 Year
  Sex: Female
  Weight: 60 kg

DRUGS (12)
  1. PIPERACILLIN SODIUM\TAZOBACTAM SODIUM [Suspect]
     Active Substance: PIPERACILLIN SODIUM\TAZOBACTAM SODIUM
     Indication: Product used for unknown indication
     Dosage: UNK
     Route: 042
  2. NALOXONE HYDROCHLORIDE\TILIDINE HYDROCHLORIDE [Suspect]
     Active Substance: NALOXONE HYDROCHLORIDE\TILIDINE HYDROCHLORIDE
     Indication: Product used for unknown indication
     Dosage: UNK, BID 4|50 MG, 2-0-2-0, RETARD-TABLETTEN
     Route: 048
  3. MOVICOL [Concomitant]
     Active Substance: POLYETHYLENE GLYCOL 3350\POTASSIUM CHLORIDE\SODIUM BICARBONATE\SODIUM CHLORIDE
     Indication: Product used for unknown indication
     Dosage: BEDARF, PULVER
     Route: 048
  4. ACETAMINOPHEN [Concomitant]
     Active Substance: ACETAMINOPHEN
     Indication: Product used for unknown indication
     Dosage: 500 MG, QID  1-1-1-1, TABLETTEN
     Route: 048
  5. ESOMEPRAZOLE [Concomitant]
     Active Substance: ESOMEPRAZOLE
     Indication: Product used for unknown indication
     Dosage: 40 MG, BID  1-0-1-0, KAPSELN
     Route: 048
  6. POTASSIUM CHLORIDE [Concomitant]
     Active Substance: POTASSIUM CHLORIDE
     Indication: Product used for unknown indication
     Dosage: UNK UNK, QID 2-2-2-2, RETARD-KAPSELN
     Route: 048
  7. MIRTAZAPINE [Concomitant]
     Active Substance: MIRTAZAPINE
     Indication: Product used for unknown indication
     Dosage: 15 MG, QD 0-0-0-0.5, TABLETTEN
     Route: 048
  8. SAB SIMPLEX [Concomitant]
     Indication: Product used for unknown indication
     Dosage: UNK, TID 15-15-15-0, SUSPENSION
     Route: 048
  9. ASPIRIN [Concomitant]
     Active Substance: ASPIRIN
     Indication: Product used for unknown indication
     Dosage: 100 MG, QD 1-0-0-0, TABLETTEN
     Route: 048
  10. RIOPAN [Concomitant]
     Indication: Product used for unknown indication
     Dosage: UNK, QID 1-1-1-1, SUSPENSION
     Route: 048
  11. FRESUBIN 2 KCAL FIBRE [Concomitant]
     Indication: Product used for unknown indication
     Dosage: UNK, TID 1-1-1-0
     Route: 048
  12. METOCLOPRAMIDE [Concomitant]
     Active Substance: METOCLOPRAMIDE
     Indication: Product used for unknown indication
     Dosage: 10 MG, TID 1-1-1-0
     Route: 048

REACTIONS (3)
  - Disturbance in attention [Unknown]
  - Sepsis [Unknown]
  - Depressed level of consciousness [Unknown]

NARRATIVE: CASE EVENT DATE: 20210319
